FAERS Safety Report 4864164-8 (Version None)
Quarter: 2005Q4

REPORT INFORMATION
  Report Type: 
  Country: None (occurrence: None)
  Receive Date: 20051222
  Receipt Date: 20051219
  Transmission Date: 20060501
  Serious: Yes (Life-Threatening)
  Sender: FDA-Public Use
  Company Number: 2005-11-1488

PATIENT
  Age: 55 Year
  Sex: Male

DRUGS (10)
  1. FORTUM [Suspect]
     Indication: PYREXIA
     Dosage: 3G PER DAY
     Route: 042
     Dates: start: 20051025, end: 20051113
  2. POSACONAZOLE [Suspect]
     Indication: BRONCHOPULMONARY ASPERGILLOSIS
     Dosage: 400MG TWICE PER DAY
     Route: 048
     Dates: start: 20051021, end: 20051115
  3. LAROXYL [Suspect]
     Indication: PAIN
     Dosage: 50MG PER DAY
     Route: 048
     Dates: start: 20050923, end: 20051113
  4. TAVANIC [Suspect]
     Indication: PYREXIA
     Dosage: 1TAB PER DAY
     Route: 048
     Dates: start: 20051023, end: 20051113
  5. NEURONTIN [Suspect]
     Indication: PAIN
     Dosage: 3TAB PER DAY
     Route: 048
     Dates: start: 20050923, end: 20051113
  6. XANAX [Suspect]
     Indication: ANXIETY
     Dosage: 3TAB PER DAY
     Route: 048
     Dates: start: 20051014, end: 20051113
  7. EFFEXOR [Suspect]
     Indication: DEPRESSION
     Dosage: 1TAB PER DAY
     Route: 048
     Dates: start: 20051009, end: 20051113
  8. TOPALGIC (FRANCE) [Suspect]
     Indication: PAIN
     Dosage: 1TAB PER DAY
     Route: 048
     Dates: start: 20051009, end: 20051113
  9. NEXIUM [Concomitant]
     Indication: PROPHYLAXIS
     Dosage: 20MG PER DAY
     Route: 048
     Dates: start: 20051007
  10. HEPARIN [Concomitant]
     Indication: PROPHYLAXIS
     Dosage: 7000IU PER DAY
     Dates: start: 20050924

REACTIONS (3)
  - CANDIDIASIS [None]
  - CYTOLYTIC HEPATITIS [None]
  - RENAL FAILURE [None]
